FAERS Safety Report 11806015 (Version 2)
Quarter: 2015Q4

REPORT INFORMATION
  Report Type: Spontaneous
  Country: RU (occurrence: RU)
  Receive Date: 20151207
  Receipt Date: 20151212
  Transmission Date: 20160305
  Serious: Yes (Other)
  Sender: FDA-Public Use
  Company Number: RU-ASTRAZENECA-2015SF02944

PATIENT
  Sex: Male

DRUGS (4)
  1. ATACAND PLUS [Suspect]
     Active Substance: CANDESARTAN CILEXETIL\HYDROCHLOROTHIAZIDE
     Indication: ESSENTIAL HYPERTENSION
     Dosage: 16 MG/12.5 MG, 2 TABLETS DAILY
     Route: 048
     Dates: start: 201509, end: 201510
  2. MOXONIDINE [Concomitant]
     Active Substance: MOXONIDINE
  3. BISOPROLOL [Concomitant]
     Active Substance: BISOPROLOL
     Dosage: TWO TIMES A DAY
     Route: 048
  4. ATACAND PLUS [Suspect]
     Active Substance: CANDESARTAN CILEXETIL\HYDROCHLOROTHIAZIDE
     Indication: ESSENTIAL HYPERTENSION
     Dosage: 16 MG/12.5 MG, 1 TABLET DAILY
     Route: 048
     Dates: start: 201509

REACTIONS (2)
  - Blood pressure increased [Unknown]
  - Drug ineffective [Not Recovered/Not Resolved]

NARRATIVE: CASE EVENT DATE: 201509
